FAERS Safety Report 7406016-5 (Version None)
Quarter: 2011Q2

REPORT INFORMATION
  Report Type: 
  Country: None (occurrence: None)
  Receive Date: 20110411
  Receipt Date: 20110404
  Transmission Date: 20111010
  Serious: Yes (Hospitalization)
  Sender: FDA-Public Use
  Company Number: A0899042A

PATIENT
  Age: 63 Year
  Sex: Male

DRUGS (2)
  1. AVANDAMET [Suspect]
     Route: 048
     Dates: start: 20030101, end: 20051201
  2. AVANDIA [Suspect]
     Route: 065
     Dates: start: 20050301, end: 20071201

REACTIONS (2)
  - CORONARY ARTERY DISEASE [None]
  - SILENT MYOCARDIAL INFARCTION [None]
